FAERS Safety Report 4780275-X (Version None)
Quarter: 2005Q3

REPORT INFORMATION
  Report Type: 
  Country: None (occurrence: None)
  Receive Date: 20050914
  Receipt Date: 20050713
  Transmission Date: 20060218
  Serious: Yes (Hospitalization)
  Sender: FDA-Public Use
  Company Number: 163-20785-05070230 (0)

PATIENT
  Age: 69 Year
  Sex: Female
  Weight: 48 kg

DRUGS (17)
  1. THALOMID [Suspect]
     Indication: MULTIPLE MYELOMA
     Dosage: 100MG, DAILY, ORAL
     Route: 048
     Dates: start: 20050316, end: 20050414
  2. MELPHALAN (MELPHALAN) (UNKNOWN) [Suspect]
     Indication: MULTIPLE MYELOMA
     Dosage: 296 MG, INTRAVENOUS
     Route: 042
     Dates: start: 20050123, end: 20050123
  3. DEXAMETHASONE [Suspect]
     Indication: MULTIPLE MYELOMA
     Dosage: 20 MG DAILY, FOR 4 DAYS Q 21 DAYS, ORAL
     Route: 048
     Dates: start: 20050316, end: 20050319
  4. DEXAMETHASONE [Suspect]
     Indication: MULTIPLE MYELOMA
     Dosage: 20 MG DAILY, FOR 4 DAYS Q 21 DAYS, ORAL
     Route: 048
     Dates: start: 20050411, end: 20050414
  5. VELCADE [Suspect]
     Indication: MULTIPLE MYELOMA
  6. ADRIAMYCIN PFS [Suspect]
     Indication: MULTIPLE MYELOMA
  7. CISPLATIN [Suspect]
     Indication: MULTIPLE MYELOMA
  8. CYCLOPHOSPHAMIDE [Suspect]
     Indication: MULTIPLE MYELOMA
  9. ETOPOSIDE [Suspect]
     Indication: MULTIPLE MYELOMA
  10. ACYCLOVIR (ACICLOVIR) (UNKNOWN) [Concomitant]
  11. LEVAQUIN (LEVOFLOXACIN) (UNKNOWN) [Concomitant]
  12. WELLBUTRIN (BUPROPION HYDROCHLORIDE) (UNKNOWN) [Concomitant]
  13. COLAZAL (BALSALAZIDE SODIUM) (UNKNOWN) [Concomitant]
  14. URSO (URSODEOXYCHOLIC ACID) (UNKNOWN) [Concomitant]
  15. PROPRANOLOL (PROPRANOLOL) (UNKNOWN) [Concomitant]
  16. ZANTAC (RANITIDINE HYDROCHLORIDE) (UNKNOWN) [Concomitant]
  17. ATIVAN [Concomitant]

REACTIONS (4)
  - ASPERGILLOSIS [None]
  - COUGH [None]
  - PYREXIA [None]
  - SINUSITIS [None]
